FAERS Safety Report 8859312 (Version 1)
Quarter: 2012Q4

REPORT INFORMATION
  Report Type: 
  Country: US (occurrence: US)
  Receive Date: 20121024
  Receipt Date: 20121024
  Transmission Date: 20130627
  Serious: No
  Sender: FDA-Public Use
  Company Number: US-ASTRAZENECA-2012SE26340

PATIENT
  Age: 60 Year
  Sex: Female
  Weight: 49.9 kg

DRUGS (15)
  1. TOPROL XL [Suspect]
     Indication: CEREBROVASCULAR ACCIDENT
     Route: 048
     Dates: start: 1996, end: 1996
  2. TOPROL XL [Suspect]
     Indication: CONFUSIONAL STATE
     Route: 048
     Dates: start: 1996, end: 1996
  3. TOPROL XL [Suspect]
     Indication: MONOPLEGIA
     Route: 048
     Dates: start: 1996, end: 1996
  4. TOPROL XL [Suspect]
     Indication: VISUAL ACUITY REDUCED
     Route: 048
     Dates: start: 1996, end: 1996
  5. TOPROL XL [Suspect]
     Indication: MIGRAINE
     Route: 048
     Dates: start: 1996, end: 1996
  6. TOPROL XL [Suspect]
     Indication: CEREBROVASCULAR ACCIDENT
     Route: 048
     Dates: start: 201201, end: 201204
  7. TOPROL XL [Suspect]
     Indication: CONFUSIONAL STATE
     Route: 048
     Dates: start: 201201, end: 201204
  8. TOPROL XL [Suspect]
     Indication: MONOPLEGIA
     Route: 048
     Dates: start: 201201, end: 201204
  9. TOPROL XL [Suspect]
     Indication: VISUAL ACUITY REDUCED
     Route: 048
     Dates: start: 201201, end: 201204
  10. TOPROL XL [Suspect]
     Indication: MIGRAINE
     Route: 048
     Dates: start: 201201, end: 201204
  11. TOPROL XL [Suspect]
     Indication: CEREBROVASCULAR ACCIDENT
     Route: 048
     Dates: start: 201204
  12. TOPROL XL [Suspect]
     Indication: CONFUSIONAL STATE
     Route: 048
     Dates: start: 201204
  13. TOPROL XL [Suspect]
     Indication: MONOPLEGIA
     Route: 048
     Dates: start: 201204
  14. TOPROL XL [Suspect]
     Indication: VISUAL ACUITY REDUCED
     Route: 048
     Dates: start: 201204
  15. TOPROL XL [Suspect]
     Indication: MIGRAINE
     Route: 048
     Dates: start: 201204

REACTIONS (8)
  - Hypoglycaemia [Unknown]
  - Hunger [Unknown]
  - Limb discomfort [Unknown]
  - Autoimmune disorder [Unknown]
  - Somnolence [Unknown]
  - Vision blurred [Unknown]
  - Hyperhidrosis [Unknown]
  - Off label use [Unknown]
